FAERS Safety Report 5206961-5 (Version None)
Quarter: 2007Q1

REPORT INFORMATION
  Report Type: 
  Country: None (occurrence: None)
  Receive Date: 20070108
  Receipt Date: 20070108
  Transmission Date: 20070707
  Serious: Yes (Hospitalization)
  Sender: FDA-Public Use
  Company Number: None

PATIENT
  Sex: Female
  Weight: 74.2 kg

DRUGS (2)
  1. CYCLOPHOSPHAMIDE [Suspect]
     Dosage: 1128 MG
  2. DOXORUBICIN HYDROCHLORIDE [Suspect]
     Dosage: 113 MG

REACTIONS (5)
  - FATIGUE [None]
  - NEUTROPHIL COUNT DECREASED [None]
  - ORAL CANDIDIASIS [None]
  - PYREXIA [None]
  - WHITE BLOOD CELL COUNT DECREASED [None]
